FAERS Safety Report 17102210 (Version 1)
Quarter: 2019Q4

REPORT INFORMATION
  Report Type: Spontaneous
  Country: US (occurrence: US)
  Receive Date: 20191106
  Receipt Date: 20191106
  Transmission Date: 20200122
  Serious: Yes (Hospitalization)
  Sender: FDA-Public Use
  Company Number: None

PATIENT
  Age: 23 Year
  Sex: Female

DRUGS (1)
  1. REMICADE [Suspect]
     Active Substance: INFLIXIMAB
     Indication: COLITIS ULCERATIVE
     Dosage: ?          OTHER FREQUENCY:EVERY 8 WEEKS;?
     Route: 042
     Dates: start: 20171012

REACTIONS (5)
  - Myocardial necrosis marker increased [None]
  - Dystonia [None]
  - Electrocardiogram abnormal [None]
  - Infusion related reaction [None]
  - Chest pain [None]

NARRATIVE: CASE EVENT DATE: 20191018
